FAERS Safety Report 22389683 (Version 1)
Quarter: 2023Q2

REPORT INFORMATION
  Report Type: Spontaneous
  Country: US (occurrence: US)
  Receive Date: 20230531
  Receipt Date: 20230531
  Transmission Date: 20230722
  Serious: No
  Sender: FDA-Public Use
  Company Number: US-BAYER-2023A069566

PATIENT
  Sex: Female

DRUGS (16)
  1. ASTEPRO [Suspect]
     Active Substance: AZELASTINE HYDROCHLORIDE
     Indication: Hypersensitivity
     Dosage: 1 SPRAYED EACH NOSTRIL
  2. ASTEPRO [Suspect]
     Active Substance: AZELASTINE HYDROCHLORIDE
     Indication: Nasopharyngitis
  3. MONTELUKAST [Suspect]
     Active Substance: MONTELUKAST SODIUM
     Indication: Hypersensitivity
     Dosage: 10 MG 1 X A DAY
     Route: 048
  4. MONTELUKAST [Suspect]
     Active Substance: MONTELUKAST SODIUM
     Indication: Nasopharyngitis
  5. CLARINEX [Concomitant]
     Active Substance: DESLORATADINE
     Indication: Hypersensitivity
     Dosage: 2 DF
     Route: 048
  6. CLARINEX [Concomitant]
     Active Substance: DESLORATADINE
     Indication: Nasopharyngitis
  7. SODIUM CHLORIDE [Concomitant]
     Active Substance: SODIUM CHLORIDE
     Indication: Hypersensitivity
     Dosage: 2SPRAYED TWICE A DAY
  8. SODIUM CHLORIDE [Concomitant]
     Active Substance: SODIUM CHLORIDE
     Indication: Nasopharyngitis
  9. CELEBREX [Concomitant]
     Active Substance: CELECOXIB
     Indication: Prophylaxis
     Dosage: 200 MG, BID
     Route: 048
  10. PONOPHEN [Concomitant]
     Indication: Prophylaxis
     Dosage: 500 MG, BID
     Route: 048
  11. PROPRANOLOL [Concomitant]
     Active Substance: PROPRANOLOL HYDROCHLORIDE
     Indication: Prophylaxis
     Dosage: 25MG 1X A DAY
     Route: 048
  12. VERAPAMIL [Concomitant]
     Active Substance: VERAPAMIL HYDROCHLORIDE
     Indication: Prophylaxis
     Dosage: 200MG 1X A DAY
     Route: 048
  13. ROSUVASTATIN [Concomitant]
     Active Substance: ROSUVASTATIN
     Indication: Prophylaxis
     Dosage: 10MG 1X A DAY
     Route: 048
  14. LEVOTHYROXINE [Concomitant]
     Active Substance: LEVOTHYROXINE
     Indication: Prophylaxis
     Dosage: 75MCG 1X A DAY
     Route: 048
  15. MOISTUREL [Concomitant]
     Active Substance: DIMETHICONE
     Indication: Hypersensitivity
     Dosage: NO ACTUAL AMOUNT
     Route: 061
  16. MOISTUREL [Concomitant]
     Active Substance: DIMETHICONE
     Indication: Nasopharyngitis

REACTIONS (2)
  - Feeling abnormal [Recovering/Resolving]
  - Nasal discomfort [None]
